FAERS Safety Report 9625109 (Version 1)
Quarter: 2013Q4

REPORT INFORMATION
  Report Type: Spontaneous
  Country: US (occurrence: None)
  Receive Date: 20131015
  Receipt Date: 20131015
  Transmission Date: 20140711
  Serious: Yes (Other)
  Sender: FDA-Public Use
  Company Number: None

PATIENT
  Age: 48 Year
  Sex: Female

DRUGS (2)
  1. EXJADE [Suspect]
     Route: 048
     Dates: start: 20120824, end: 201309
  2. EXJADE [Suspect]
     Route: 048
     Dates: start: 20120824, end: 201309

REACTIONS (3)
  - Malaise [None]
  - Nausea [None]
  - Vomiting [None]
